FAERS Safety Report 14491018 (Version 3)
Quarter: 2018Q3

REPORT INFORMATION
  Report Type: Spontaneous
  Country: US (occurrence: US)
  Receive Date: 20180206
  Receipt Date: 20180702
  Transmission Date: 20181010
  Serious: No
  Sender: FDA-Public Use
  Company Number: US-PFIZER INC-2018050185

PATIENT
  Age: 70 Year
  Sex: Female
  Weight: 95.25 kg

DRUGS (2)
  1. XELJANZ XR [Suspect]
     Active Substance: TOFACITINIB CITRATE
     Indication: ARTHRITIS
  2. XELJANZ XR [Suspect]
     Active Substance: TOFACITINIB CITRATE
     Indication: RHEUMATOID ARTHRITIS
     Dosage: 11 MG, DAILY
     Route: 048

REACTIONS (5)
  - Intentional dose omission [Unknown]
  - Urticaria [Unknown]
  - Rash [Unknown]
  - Stress [Unknown]
  - Nausea [Recovered/Resolved]
